FAERS Safety Report 11183732 (Version 1)
Quarter: 2015Q2

REPORT INFORMATION
  Report Type: Spontaneous
  Country: US (occurrence: None)
  Receive Date: 20150610
  Receipt Date: 20150610
  Transmission Date: 20150821
  Serious: Yes (Life-Threatening, Hospitalization)
  Sender: FDA-Public Use
  Company Number: None

PATIENT
  Age: 81 Year
  Sex: Male
  Weight: 79.38 kg

DRUGS (9)
  1. CARVEDILOL. [Concomitant]
     Active Substance: CARVEDILOL
  2. GABAPENTIN. [Concomitant]
     Active Substance: GABAPENTIN
  3. CITALOPRAM [Concomitant]
     Active Substance: CITALOPRAM HYDROBROMIDE
  4. PRAVASTATIN [Concomitant]
     Active Substance: PRAVASTATIN\PRAVASTATIN SODIUM
  5. PENNSAID [Suspect]
     Active Substance: DICLOFENAC SODIUM
     Indication: ARTHRITIS
     Dosage: ON THE SKIN, 2 PUMPS
     Dates: start: 20150507, end: 20150509
  6. ZETIA [Concomitant]
     Active Substance: EZETIMIBE
  7. LOSARTAN [Concomitant]
     Active Substance: LOSARTAN
  8. POTASSIUM [Concomitant]
     Active Substance: POTASSIUM
  9. WARFARIN [Concomitant]
     Active Substance: WARFARIN

REACTIONS (10)
  - Dysarthria [None]
  - Lethargy [None]
  - Cerebrovascular accident [None]
  - Confusional state [None]
  - Seizure [None]
  - Erythema [None]
  - Aspiration [None]
  - Pneumonia [None]
  - Blister [None]
  - Asthenia [None]

NARRATIVE: CASE EVENT DATE: 20150509
